FAERS Safety Report 26052334 (Version 1)
Quarter: 2025Q4

REPORT INFORMATION
  Report Type: Spontaneous
  Country: CN (occurrence: CN)
  Receive Date: 20251117
  Receipt Date: 20251117
  Transmission Date: 20260117
  Serious: Yes (Life-Threatening, Other)
  Sender: MELINTA THERAPEUTICS
  Company Number: CN-ASTRAZENECA-202511CHN002092CN

PATIENT

DRUGS (2)
  1. METOPROLOL SUCCINATE [Suspect]
     Active Substance: METOPROLOL SUCCINATE
     Indication: Coronary artery disease
     Dosage: 23.75 MILLIGRAM, QD
     Route: 048
     Dates: start: 20251103, end: 20251103
  2. GABAPENTIN [Suspect]
     Active Substance: GABAPENTIN
     Indication: Neuralgia
     Dosage: 0.3 GRAM, QD
     Route: 048
     Dates: start: 20251103, end: 20251103

REACTIONS (2)
  - Hypotension [Recovering/Resolving]
  - Loss of consciousness [Recovering/Resolving]

NARRATIVE: CASE EVENT DATE: 20251103
